FAERS Safety Report 20047266 (Version 1)
Quarter: 2021Q4

REPORT INFORMATION
  Report Type: Report from Study
  Country: ES (occurrence: None)
  Receive Date: 20211109
  Receipt Date: 20211109
  Transmission Date: 20220303
  Serious: Yes (Hospitalization)
  Sender: FDA-Public Use
  Company Number: ES-ROCHE-2948101

PATIENT
  Age: 58 Year
  Sex: Male
  Weight: 85 kg

DRUGS (3)
  1. ATEZOLIZUMAB [Suspect]
     Active Substance: ATEZOLIZUMAB
     Indication: Non-small cell lung cancer
     Dosage: ON 05/OCT/2021, RECEIVED LAST DOSE OF ATEZOLIZUMAB BEFORE SAE.
     Route: 041
     Dates: start: 20211005
  2. BEVACIZUMAB [Suspect]
     Active Substance: BEVACIZUMAB
     Indication: Non-small cell lung cancer
     Dosage: 05/OCT/2021, RECEIVED LAST DOSE OF BEVACIZUMAB BEFORE TO SAE
     Route: 042
     Dates: start: 20211005
  3. PEMETREXED [Suspect]
     Active Substance: PEMETREXED
     Indication: Non-small cell lung cancer
     Dosage: ON 05/OCT/2021, RECEIVED LAST DOSE OF PEMETREXED BEFORE SAE.
     Route: 042
     Dates: start: 20211005

REACTIONS (1)
  - Bronchitis [Recovered/Resolved]

NARRATIVE: CASE EVENT DATE: 20211018
